FAERS Safety Report 9224480 (Version 2)
Quarter: 2013Q2

REPORT INFORMATION
  Report Type: Spontaneous
  Country: US (occurrence: US)
  Receive Date: 20130411
  Receipt Date: 20130517
  Transmission Date: 20140414
  Serious: Yes (Other)
  Sender: FDA-Public Use
  Company Number: US-JNJFOC-20130400963

PATIENT
  Age: 83 Year
  Sex: Female
  Weight: 91 kg

DRUGS (12)
  1. XARELTO [Suspect]
     Indication: DEEP VEIN THROMBOSIS
     Route: 048
     Dates: start: 20130320, end: 20130401
  2. XARELTO [Suspect]
     Indication: DEEP VEIN THROMBOSIS
     Route: 048
     Dates: start: 20130402
  3. AMITRIPTYLIN [Concomitant]
     Indication: PRODUCT USED FOR UNKNOWN INDICATION
     Route: 048
  4. HYDROCHLOROTHIAZIDE [Concomitant]
     Route: 048
  5. LOSARTAN [Concomitant]
     Route: 048
  6. METOPROLOL [Concomitant]
     Indication: HYPERTENSION
     Route: 048
  7. LOVENOX [Concomitant]
     Indication: DEEP VEIN THROMBOSIS
     Dosage: 4 DOSES
     Route: 065
     Dates: start: 20130318, end: 20130320
  8. LOVENOX [Concomitant]
     Indication: DEEP VEIN THROMBOSIS
     Dosage: 90 MG
     Route: 065
     Dates: start: 20130329
  9. PANTOPRAZOLE [Concomitant]
     Indication: GASTROOESOPHAGEAL REFLUX DISEASE
     Route: 065
  10. HYDROCODONE/APAP [Concomitant]
     Indication: PAIN
     Dosage: 5/325 MG
     Route: 065
  11. COUMADIN [Concomitant]
     Indication: DEEP VEIN THROMBOSIS
     Route: 065
     Dates: start: 20130318, end: 20130319
  12. IBUPROFEN [Concomitant]
     Indication: OSTEOARTHRITIS
     Dosage: 400MG AM, 200MG PM
     Route: 065
     Dates: start: 20130319

REACTIONS (3)
  - Deep vein thrombosis [Recovered/Resolved]
  - Medication error [Recovered/Resolved]
  - Incorrect drug dosage form administered [Recovered/Resolved]
